FAERS Safety Report 25144056 (Version 1)
Quarter: 2025Q2

REPORT INFORMATION
  Report Type: Spontaneous
  Country: US (occurrence: US)
  Receive Date: 20250401
  Receipt Date: 20250401
  Transmission Date: 20250717
  Serious: No
  Sender: ABBVIE
  Company Number: US-ABBVIE-6199926

PATIENT

DRUGS (1)
  1. MAVYRET [Suspect]
     Active Substance: GLECAPREVIR\PIBRENTASVIR
     Indication: Chronic hepatitis C
     Dosage: 3 TABLET?START DATE TEXT: UNKNOWN?PRODUCT (GLECAPREVIR/PIBRENTASVIR) - STOP DATE TEXT: UNKNOWN
     Route: 048

REACTIONS (1)
  - Headache [Not Recovered/Not Resolved]
